FAERS Safety Report 13905982 (Version 7)
Quarter: 2020Q1

REPORT INFORMATION
  Report Type: Report from Study
  Country: US (occurrence: US)
  Receive Date: 20170825
  Receipt Date: 20200323
  Transmission Date: 20200409
  Serious: Yes (Life-Threatening, Other)
  Sender: FDA-Public Use
  Company Number: PHHY2014US138766

PATIENT
  Age: 24 Year
  Sex: Female
  Weight: 73 kg

DRUGS (6)
  1. ZANAFLEX [Concomitant]
     Active Substance: TIZANIDINE HYDROCHLORIDE
     Indication: RADICULOPATHY
  2. GILENYA [Suspect]
     Active Substance: FINGOLIMOD HYDROCHLORIDE
     Indication: MULTIPLE SCLEROSIS
     Dosage: 0.5 MG, QD
     Route: 048
     Dates: start: 20140429, end: 20160526
  3. VALIUM [Concomitant]
     Active Substance: DIAZEPAM
     Indication: CLAUSTROPHOBIA
     Dosage: UNK
     Route: 065
     Dates: start: 20150324, end: 20150324
  4. FLONASE [Concomitant]
     Active Substance: FLUTICASONE PROPIONATE
     Indication: HYPERSENSITIVITY
     Route: 065
     Dates: start: 20140522
  5. HEROIN [Suspect]
     Active Substance: DIAMORPHINE
     Indication: PAIN
     Dosage: UNK
     Route: 065
     Dates: start: 201412, end: 20160704
  6. ZANAFLEX [Concomitant]
     Active Substance: TIZANIDINE HYDROCHLORIDE
     Indication: NECK PAIN
     Dosage: UNK
     Route: 065
     Dates: start: 20140522

REACTIONS (34)
  - Multiple sclerosis relapse [Recovered/Resolved]
  - Skin laceration [Recovered/Resolved]
  - Weight decreased [Recovered/Resolved]
  - Neck pain [Not Recovered/Not Resolved]
  - Migraine [Recovered/Resolved]
  - Essential tremor [Not Recovered/Not Resolved]
  - Acne [Recovered/Resolved]
  - Fatigue [Not Recovered/Not Resolved]
  - Vomiting [Not Recovered/Not Resolved]
  - Multiple sclerosis relapse [Recovered/Resolved]
  - Melanocytic naevus [Recovered/Resolved]
  - Drug dependence [Recovered/Resolved]
  - Asthenia [Not Recovered/Not Resolved]
  - Panic attack [Not Recovered/Not Resolved]
  - Vitamin D deficiency [Recovered/Resolved]
  - Pain in extremity [Not Recovered/Not Resolved]
  - Nausea [Not Recovered/Not Resolved]
  - Spondylolisthesis [Not Recovered/Not Resolved]
  - Paraesthesia [Recovered/Resolved]
  - White blood cell count decreased [Recovered/Resolved]
  - Headache [Recovered/Resolved]
  - Haematuria [Recovered/Resolved]
  - Micturition urgency [Unknown]
  - Urinary tract infection [Recovered/Resolved]
  - Anxiety [Recovered/Resolved]
  - Road traffic accident [Recovered/Resolved]
  - Back pain [Not Recovered/Not Resolved]
  - Hypermobility syndrome [Not Recovered/Not Resolved]
  - Weight increased [Unknown]
  - Muscle spasms [Not Recovered/Not Resolved]
  - Vertigo [Not Recovered/Not Resolved]
  - Bladder spasm [Unknown]
  - Urinary tract infection [Recovered/Resolved]
  - Depression [Not Recovered/Not Resolved]

NARRATIVE: CASE EVENT DATE: 20140502
